FAERS Safety Report 24623718 (Version 1)
Quarter: 2024Q4

REPORT INFORMATION
  Report Type: Report from Study
  Country: CL (occurrence: CL)
  Receive Date: 20241115
  Receipt Date: 20241115
  Transmission Date: 20250115
  Serious: Yes (Death)
  Sender: ROCHE
  Company Number: CL-ROCHE-10000125223

PATIENT
  Age: 55 Year
  Sex: Female

DRUGS (1)
  1. HERCEPTIN [Suspect]
     Active Substance: TRASTUZUMAB
     Indication: Breast cancer metastatic
     Route: 058
     Dates: start: 20171106

REACTIONS (4)
  - Sepsis [Fatal]
  - Cellulite [Fatal]
  - Breast cancer stage IV [Fatal]
  - Ulcer [Fatal]
